FAERS Safety Report 23265466 (Version 1)
Quarter: 2023Q4

REPORT INFORMATION
  Report Type: Spontaneous
  Country: IE (occurrence: IE)
  Receive Date: 20231206
  Receipt Date: 20231206
  Transmission Date: 20240109
  Serious: No
  Sender: FDA-Public Use
  Company Number: IE-JNJFOC-20231152338

PATIENT
  Age: 57 Year
  Sex: Female

DRUGS (4)
  1. SIMPONI [Suspect]
     Active Substance: GOLIMUMAB
     Indication: Product used for unknown indication
     Dosage: STRENGTH: 50.00 MG / 0.50 ML
     Route: 058
     Dates: start: 202303
  2. ALENDRONIC ACID [Concomitant]
     Active Substance: ALENDRONIC ACID
  3. CALCIUM CARBONATE [Concomitant]
     Active Substance: CALCIUM CARBONATE
     Dosage: 2 TABLETS DAILY
  4. ERGOCALCIFEROL [Concomitant]
     Active Substance: ERGOCALCIFEROL

REACTIONS (2)
  - Device failure [Unknown]
  - Product dose omission issue [Unknown]
